FAERS Safety Report 16393311 (Version 1)
Quarter: 2019Q3

REPORT INFORMATION
  Report Type: Spontaneous
  Country: US (occurrence: US)
  Receive Date: 20190603
  Receipt Date: 20190603
  Transmission Date: 20191004
  Serious: Yes (Disabling)
  Sender: FDA-Public Use
  Company Number: None

PATIENT
  Age: 58 Year
  Sex: Female
  Weight: 66.15 kg

DRUGS (1)
  1. CLONAZEPAM .5MG ORALLY DISINTEGRATING TABLET [Suspect]
     Active Substance: CLONAZEPAM
     Indication: POOR QUALITY SLEEP
     Dosage: ?          QUANTITY:1 TABLET(S);?
     Route: 060
     Dates: start: 20190512, end: 20190516

REACTIONS (15)
  - Constipation [None]
  - Muscular weakness [None]
  - Emotional disorder [None]
  - Visual impairment [None]
  - Eructation [None]
  - Musculoskeletal chest pain [None]
  - Excessive eye blinking [None]
  - Nuchal rigidity [None]
  - Aphasia [None]
  - Hyperhidrosis [None]
  - Confusional state [None]
  - Back pain [None]
  - Memory impairment [None]
  - Feeling abnormal [None]
  - Feeling jittery [None]

NARRATIVE: CASE EVENT DATE: 20190512
